FAERS Safety Report 7161261-1 (Version None)
Quarter: 2010Q4

REPORT INFORMATION
  Report Type: 
  Country: None (occurrence: None)
  Receive Date: 20101210
  Receipt Date: 20101210
  Transmission Date: 20110411
  Serious: Yes (Other)
  Sender: FDA-Public Use
  Company Number: None

PATIENT
  Age: 55 Year
  Sex: Male
  Weight: 61.2356 kg

DRUGS (1)
  1. GEODON [Suspect]
     Indication: DEPRESSION
     Dates: start: 20100210, end: 20100410

REACTIONS (5)
  - ACTIVITIES OF DAILY LIVING IMPAIRED [None]
  - DIABETIC COMPLICATION [None]
  - DYSPNOEA [None]
  - FEELING COLD [None]
  - PAINFUL RESPIRATION [None]
